FAERS Safety Report 4402135-6 (Version None)
Quarter: 2004Q3

REPORT INFORMATION
  Report Type: 
  Country: None (occurrence: None)
  Receive Date: 20040716
  Receipt Date: 20011120
  Transmission Date: 20050211
  Serious: Yes (Hospitalization)
  Sender: FDA-Public Use
  Company Number: 02100-JPN-01-0108

PATIENT
  Age: 49 Year
  Sex: Female

DRUGS (10)
  1. CILOSTAZOL [Suspect]
     Indication: CORONARY ANGIOPLASTY
     Dosage: SEE IMAGE
     Route: 048
     Dates: start: 20011025, end: 20011028
  2. CILOSTAZOL [Suspect]
     Indication: CORONARY ARTERIAL STENT INSERTION
     Dosage: SEE IMAGE
     Route: 048
     Dates: start: 20011025, end: 20011028
  3. CILOSTAZOL [Suspect]
     Indication: HYPERTENSION
     Dosage: SEE IMAGE
     Route: 048
     Dates: start: 20011025, end: 20011028
  4. CILOSTAZOL [Suspect]
     Indication: CORONARY ANGIOPLASTY
     Dosage: SEE IMAGE
     Route: 048
     Dates: start: 20011001
  5. CILOSTAZOL [Suspect]
     Indication: CORONARY ARTERIAL STENT INSERTION
     Dosage: SEE IMAGE
     Route: 048
     Dates: start: 20011001
  6. CILOSTAZOL [Suspect]
     Indication: HYPERTENSION
     Dosage: SEE IMAGE
     Route: 048
     Dates: start: 20011001
  7. ACARBOSE [Concomitant]
  8. METFORMIN HCL [Concomitant]
  9. VITAMIN B1 AND C [Concomitant]
  10. RESERPINE AND HYDROCHLOROTHIAZIDE [Suspect]

REACTIONS (6)
  - ATHEROSCLEROSIS OBLITERANS [None]
  - BLOOD PRESSURE INCREASED [None]
  - DIABETES MELLITUS [None]
  - DUODENAL ULCER [None]
  - GASTROINTESTINAL HAEMORRHAGE [None]
  - TREATMENT NONCOMPLIANCE [None]
